FAERS Safety Report 8909669 (Version 3)
Quarter: 2013Q4

REPORT INFORMATION
  Report Type: Spontaneous
  Country: US (occurrence: US)
  Receive Date: 20121115
  Receipt Date: 20131218
  Transmission Date: 20140711
  Serious: Yes (Hospitalization, Other)
  Sender: FDA-Public Use
  Company Number: US-BAYER-2012-116803

PATIENT
  Age: 26 Year
  Sex: Female
  Weight: 65.76 kg

DRUGS (5)
  1. YASMIN [Suspect]
     Indication: CONTRACEPTION
     Dosage: UNK
     Dates: start: 200605, end: 200612
  2. LEXAPRO [Concomitant]
     Indication: ANXIETY
     Dosage: UNK
     Dates: start: 2006
  3. PRENATAL PLUS IRON [Concomitant]
     Dosage: UNK
     Dates: start: 20070718
  4. VIVOTIF [TYPHOID VACCINE] [Concomitant]
     Dosage: UNK
     Dates: start: 20070816
  5. MEFLOQUINE HCL [Concomitant]
     Dosage: UNK
     Dates: start: 20070817

REACTIONS (5)
  - Gallbladder injury [None]
  - Cholecystitis acute [None]
  - Injury [None]
  - Pain [None]
  - Pain [None]
